FAERS Safety Report 13106850 (Version 1)
Quarter: 2017Q1

REPORT INFORMATION
  Report Type: Spontaneous
  Country: NO (occurrence: NO)
  Receive Date: 20170111
  Receipt Date: 20170111
  Transmission Date: 20170428
  Serious: Yes (Hospitalization, Other)
  Sender: FDA-Public Use
  Company Number: NO-009507513-1701NOR002561

PATIENT
  Sex: Male

DRUGS (7)
  1. AMLODIPINE BESYLATE (+) ENALAPRIL MALEATE [Concomitant]
  2. PREDNISOLON [Concomitant]
     Active Substance: PREDNISOLONE
  3. ZOLEDRONIC ACID [Concomitant]
     Active Substance: ZOLEDRONIC ACID
     Indication: OSTEOPOROSIS
     Dosage: UNK, Q2M
  4. PEGINTRON [Suspect]
     Active Substance: PEGINTERFERON ALFA-2B
     Dosage: 22.5 MICROGRAM, QW
  5. IRON (UNSPECIFIED) [Concomitant]
     Active Substance: IRON
  6. SIROLIMUS. [Concomitant]
     Active Substance: SIROLIMUS
  7. CALCIUM (UNSPECIFIED) [Concomitant]
     Active Substance: CALCIUM

REACTIONS (11)
  - Gorham^s disease [Unknown]
  - Procalcitonin increased [Recovered/Resolved]
  - Immunosuppression [Unknown]
  - Sepsis [Recovered/Resolved]
  - C-reactive protein increased [Recovered/Resolved]
  - White blood cell count increased [Recovered/Resolved]
  - Neutrophil count increased [Unknown]
  - Neutrophil count increased [Recovered/Resolved]
  - Procalcitonin increased [Unknown]
  - White blood cell count increased [Unknown]
  - C-reactive protein increased [Unknown]

NARRATIVE: CASE EVENT DATE: 20161227
